FAERS Safety Report 12704021 (Version 1)
Quarter: 2016Q3

REPORT INFORMATION
  Report Type: Spontaneous
  Country: US (occurrence: US)
  Receive Date: 20160831
  Receipt Date: 20160831
  Transmission Date: 20161109
  Serious: Yes (Other)
  Sender: FDA-Public Use
  Company Number: US-LPDUSPRD-20160772

PATIENT
  Age: 72 Year
  Sex: Female

DRUGS (3)
  1. COUMADIN [Concomitant]
     Active Substance: WARFARIN SODIUM
     Dosage: DOSE UNKNOWN
     Route: 065
  2. VENOFER [Suspect]
     Active Substance: IRON SUCROSE
     Dosage: 200 MG
     Route: 040
     Dates: start: 20160826
  3. UNSPECIFIED BLOOD PRESSURE MEDICATION [Concomitant]
     Active Substance: UNSPECIFIED INGREDIENT
     Dosage: DOSE UNKNOWN
     Route: 065

REACTIONS (2)
  - Off label use [Unknown]
  - Phlebitis [Unknown]

NARRATIVE: CASE EVENT DATE: 20160826
